FAERS Safety Report 15984316 (Version 2)
Quarter: 2020Q2

REPORT INFORMATION
  Report Type: Spontaneous
  Country: US (occurrence: US)
  Receive Date: 20190220
  Receipt Date: 20200505
  Transmission Date: 20200713
  Serious: Yes (Hospitalization, Other)
  Sender: FDA-Public Use
  Company Number: US-AUROBINDO-AUR-APL-2019-008169

PATIENT
  Age: 57 Year
  Sex: Male

DRUGS (7)
  1. ACICLOVIR [Suspect]
     Active Substance: ACYCLOVIR
     Indication: HERPES ZOSTER
     Dosage: 4 GRAM, DAILY (DAY 1, 2 AND 3, 800 MG BY MOUTH 5 TIMES DAILY)
     Route: 048
  2. METRONIDAZOLE. [Concomitant]
     Active Substance: METRONIDAZOLE
     Indication: CELLULITIS
     Dosage: 500 MILLIGRAM, ON DAY 2
     Route: 065
  3. ACICLOVIR [Suspect]
     Active Substance: ACYCLOVIR
     Dosage: 5 MILLIGRAM/KILOGRAM (RENALLY ADJUSTED DOSE)
     Route: 042
  4. ACICLOVIR [Suspect]
     Active Substance: ACYCLOVIR
     Dosage: 4 DOSAGE FORM, (FOUR DOSES, ON DAY 4, 800 MG, 4 TIMES)
     Route: 048
  5. CEFEPIME [Concomitant]
     Active Substance: CEFEPIME HYDROCHLORIDE
     Indication: MYOSITIS
     Dosage: 1 GRAM, DAILY, (ON DAY 1,2,3 AND 4)
     Route: 065
  6. CEFEPIME [Concomitant]
     Active Substance: CEFEPIME HYDROCHLORIDE
     Indication: CELLULITIS
  7. METRONIDAZOLE. [Concomitant]
     Active Substance: METRONIDAZOLE
     Indication: MYOSITIS
     Dosage: 500 MILLIGRAM, 3 TIMES A DAY (ON DAY 3 AND 4)
     Route: 065

REACTIONS (2)
  - Encephalopathy [Recovered/Resolved]
  - Neurotoxicity [Recovered/Resolved]
